FAERS Safety Report 10044957 (Version 1)
Quarter: 2014Q1

REPORT INFORMATION
  Report Type: Spontaneous
  Country: HK (occurrence: None)
  Receive Date: 20140326
  Receipt Date: 20140326
  Transmission Date: 20141002
  Serious: Yes (Other)
  Sender: FDA-Public Use
  Company Number: 2014AP002192

PATIENT
  Age: 47 Year
  Sex: Male

DRUGS (1)
  1. CYCLOSPORIN [Suspect]
     Indication: IMMUNOSUPPRESSION

REACTIONS (6)
  - Renal impairment [None]
  - Proteinuria [None]
  - Diabetes mellitus [None]
  - Post procedural complication [None]
  - IgA nephropathy [None]
  - Kidney fibrosis [None]
